FAERS Safety Report 7884201 (Version 4)
Quarter: 2013Q2

REPORT INFORMATION
  Report Type: Spontaneous
  Country: US (occurrence: US)
  Receive Date: 20110404
  Receipt Date: 20130419
  Transmission Date: 20140414
  Serious: Yes (Hospitalization, Other)
  Sender: FDA-Public Use
  Company Number: US-ASTRAZENECA-2011SE00639

PATIENT
  Age: 65 Year
  Sex: Female

DRUGS (7)
  1. PULMICORT [Suspect]
     Route: 055
  2. PULMICORT [Suspect]
     Route: 055
  3. ATACAND HCT [Suspect]
     Route: 048
  4. NEXIUM [Suspect]
     Indication: GASTROOESOPHAGEAL REFLUX DISEASE
     Route: 048
  5. ATACAND [Suspect]
     Route: 048
  6. SYMBICORT PMDI [Suspect]
     Dosage: FREQUENCY UNKNOWN
     Route: 055
  7. PREDNISONE [Concomitant]

REACTIONS (10)
  - Cerebrovascular disorder [Unknown]
  - Blood pressure increased [Unknown]
  - Cerebrovascular accident [Unknown]
  - Gastrooesophageal reflux disease [Unknown]
  - Asthma [Unknown]
  - Blood pressure fluctuation [Unknown]
  - Malaise [Unknown]
  - Joint swelling [Unknown]
  - Intentional drug misuse [Unknown]
  - Drug dose omission [Unknown]
